FAERS Safety Report 17978520 (Version 1)
Quarter: 2020Q3

REPORT INFORMATION
  Report Type: Spontaneous
  Country: DE (occurrence: DE)
  Receive Date: 20200703
  Receipt Date: 20200703
  Transmission Date: 20201103
  Serious: Yes (Other)
  Sender: FDA-Public Use
  Company Number: DE-MICRO LABS LIMITED-ML2020-01920

PATIENT
  Age: 66 Year
  Sex: Female

DRUGS (1)
  1. CLINDAMYCIN. [Suspect]
     Active Substance: CLINDAMYCIN
     Indication: ESCHERICHIA INFECTION
     Dosage: 600MG THREE TIMES DAILY PER OS
     Route: 048

REACTIONS (1)
  - Drug ineffective [Recovered/Resolved]
